FAERS Safety Report 25317470 (Version 1)
Quarter: 2025Q2

REPORT INFORMATION
  Report Type: Spontaneous
  Country: US (occurrence: US)
  Receive Date: 20250515
  Receipt Date: 20250515
  Transmission Date: 20250717
  Serious: Yes (Death, Life-Threatening, Hospitalization, Other)
  Sender: AUROBINDO
  Company Number: US-MLMSERVICE-20250425-PI492301-00214-1

PATIENT
  Age: 88 Year
  Sex: Male

DRUGS (4)
  1. MEROPENEM [Suspect]
     Active Substance: MEROPENEM
     Indication: Pseudomonas infection
     Route: 065
  2. VANCOMYCIN [Suspect]
     Active Substance: VANCOMYCIN
     Indication: Antibiotic therapy
     Dosage: 125 MILLIGRAM, FOUR TIMES/DAY
     Route: 054
  3. TIGECYCLINE [Suspect]
     Active Substance: TIGECYCLINE
     Indication: Antibiotic therapy
     Route: 042
  4. METRONIDAZOLE [Suspect]
     Active Substance: METRONIDAZOLE
     Indication: Antibiotic therapy
     Route: 042

REACTIONS (10)
  - Megacolon [Fatal]
  - Clostridium difficile infection [Fatal]
  - Colitis ischaemic [Fatal]
  - Ileus [Fatal]
  - Lactic acidosis [Fatal]
  - Change of bowel habit [Fatal]
  - Condition aggravated [Fatal]
  - Diarrhoea [Fatal]
  - Blood creatinine increased [Fatal]
  - Hypotension [Fatal]
